FAERS Safety Report 13587259 (Version 1)
Quarter: 2017Q2

REPORT INFORMATION
  Report Type: Spontaneous
  Country: CN (occurrence: CN)
  Receive Date: 20170526
  Receipt Date: 20170526
  Transmission Date: 20170830
  Serious: Yes (Hospitalization)
  Sender: FDA-Public Use
  Company Number: CN-GILEAD-2017-0274371

PATIENT
  Sex: Male

DRUGS (3)
  1. DIAMMONIUM GLYCYRRHIZINATE [Suspect]
     Active Substance: HERBALS
     Indication: ENZYME LEVEL INCREASED
     Dosage: UNK
     Route: 065
     Dates: start: 201702
  2. VIREAD [Suspect]
     Active Substance: TENOFOVIR DISOPROXIL FUMARATE
     Indication: HEPATITIS B
     Dosage: 1 DF, QD
     Route: 048
     Dates: start: 20170227
  3. BICYCLOL [Suspect]
     Active Substance: BICYCLOL
     Indication: ENZYME LEVEL INCREASED
     Dosage: UNK
     Route: 065
     Dates: start: 201702

REACTIONS (2)
  - Blood bilirubin increased [Not Recovered/Not Resolved]
  - Pruritus generalised [Recovered/Resolved]

NARRATIVE: CASE EVENT DATE: 20170301
